FAERS Safety Report 22336050 (Version 1)
Quarter: 2023Q2

REPORT INFORMATION
  Report Type: Spontaneous
  Country: US (occurrence: US)
  Receive Date: 20230518
  Receipt Date: 20230518
  Transmission Date: 20230721
  Serious: No
  Sender: FDA-Public Use
  Company Number: US-GLENMARK PHARMACEUTICALS-2022GMK074090

PATIENT

DRUGS (4)
  1. TOPIRAMATE [Suspect]
     Active Substance: TOPIRAMATE
     Indication: Migraine
     Dosage: 150 MILLIGRAM, QD (50MG AND 25MG, 2 TIMES A DAY, MORNING AND NIGHT)
     Route: 048
     Dates: start: 2018
  2. HYDROCODONE [Concomitant]
     Active Substance: HYDROCODONE
     Indication: Pain
     Dosage: 5/325MG TABLET, TID (TAKING THIS DRUG ON AND OFF FOR ABOUT 7)
     Route: 048
  3. LYRICA [Concomitant]
     Active Substance: PREGABALIN
     Indication: Neuralgia
     Dosage: 50 MILLIGRAM, TID
     Route: 048
     Dates: start: 201801
  4. ZYRTEC [Concomitant]
     Active Substance: CETIRIZINE HYDROCHLORIDE
     Indication: Hypersensitivity
     Dosage: 3 DOSAGE FORM, HS (TAKING ABOUT 20 YEARS)
     Route: 048

REACTIONS (11)
  - Gait inability [Unknown]
  - Thinking abnormal [Unknown]
  - Feeling abnormal [Unknown]
  - Malaise [Unknown]
  - Tremor [Unknown]
  - Disturbance in attention [Unknown]
  - Paraesthesia [Unknown]
  - Nausea [Unknown]
  - Dizziness [Unknown]
  - Product odour abnormal [Unknown]
  - Product quality issue [Unknown]
